FAERS Safety Report 21057186 (Version 1)
Quarter: 2022Q3

REPORT INFORMATION
  Report Type: Spontaneous
  Country: US (occurrence: None)
  Receive Date: 20220707
  Receipt Date: 20220707
  Transmission Date: 20221026
  Serious: Yes (Hospitalization)
  Sender: FDA-Public Use
  Company Number: None

PATIENT
  Age: 76 Year
  Sex: Female

DRUGS (2)
  1. UPTRAVI [Suspect]
     Active Substance: SELEXIPAG
  2. OPSUMIT [Concomitant]
     Active Substance: MACITENTAN

REACTIONS (4)
  - Dyspnoea [None]
  - Somnolence [None]
  - Peripheral swelling [None]
  - Blood pressure increased [None]

NARRATIVE: CASE EVENT DATE: 20220706
